FAERS Safety Report 8262602-4 (Version None)
Quarter: 2012Q2

REPORT INFORMATION
  Report Type: 
  Country: None (occurrence: None)
  Receive Date: 20120405
  Receipt Date: 20120327
  Transmission Date: 20120825
  Serious: Yes (Other)
  Sender: FDA-Public Use
  Company Number: US-ASTRAZENECA-2012SE20348

PATIENT
  Age: 61 Year
  Sex: Male
  Weight: 82.6 kg

DRUGS (2)
  1. CRESTOR [Suspect]
     Indication: BLOOD CHOLESTEROL
     Route: 048
  2. CAPSAICIN [Concomitant]
     Indication: THROMBOSIS PROPHYLAXIS

REACTIONS (2)
  - FALL [None]
  - TENDON RUPTURE [None]
